FAERS Safety Report 9202269 (Version 1)
Quarter: 2013Q1

REPORT INFORMATION
  Report Type: Spontaneous
  Country: US (occurrence: None)
  Receive Date: 20130329
  Receipt Date: 20130329
  Transmission Date: 20140127
  Serious: Yes (Death)
  Sender: FDA-Public Use
  Company Number: None

PATIENT
  Age: 71 Year
  Sex: Female
  Weight: 51.7 kg

DRUGS (1)
  1. LENALIDOMIDE [Suspect]
     Indication: MYELODYSPLASTIC SYNDROME
     Dosage: 50MG DAILY FOR 28 DAYS ORAL
     Dates: start: 20130305, end: 20130307

REACTIONS (5)
  - Sepsis [None]
  - Hypotension [None]
  - Dehydration [None]
  - Acute myocardial infarction [None]
  - Renal failure [None]
